FAERS Safety Report 10150212 (Version 2)
Quarter: 2014Q2

REPORT INFORMATION
  Report Type: Report from Study
  Country: US (occurrence: US)
  Receive Date: 20140502
  Receipt Date: 20140502
  Transmission Date: 20141212
  Serious: Yes (Hospitalization)
  Sender: FDA-Public Use
  Company Number: US-CELGENEUS-163-10004-11051147

PATIENT
  Age: 80 Year
  Sex: Male
  Weight: 77.18 kg

DRUGS (43)
  1. CC-10004 [Suspect]
     Indication: PSORIASIS
     Dosage: 60 MILLIGRAM
     Route: 048
     Dates: start: 20110323
  2. CC-10004 [Suspect]
     Indication: PROSTATIC SPECIFIC ANTIGEN
     Dosage: 60 MILLIGRAM
     Route: 048
     Dates: start: 20110509, end: 20110509
  3. CHLORPHENIRAMINE MALEATE [Concomitant]
     Indication: MULTIPLE ALLERGIES
     Dosage: 4 MILLIGRAM
     Route: 048
     Dates: start: 2000
  4. CLOPIDOGREL [Concomitant]
     Indication: CORONARY ARTERY DISEASE
     Dosage: 75 MILLIGRAM
     Route: 048
     Dates: start: 2005
  5. GABAPENTIN [Concomitant]
     Indication: NEURALGIA
     Dosage: 400 MILLIGRAM
     Route: 048
     Dates: start: 20050101
  6. GABAPENTIN [Concomitant]
     Indication: NEUROPATHY PERIPHERAL
  7. GLIPIZIDE [Concomitant]
     Indication: DIABETES MELLITUS
     Dosage: 10 MILLIGRAM
     Route: 048
     Dates: start: 2009, end: 201104
  8. GLIPIZIDE [Concomitant]
     Dosage: 40 MILLIGRAM
     Route: 048
     Dates: start: 201104, end: 20110510
  9. GLIPIZIDE [Concomitant]
     Route: 048
     Dates: start: 20110512, end: 20110512
  10. GLIPIZIDE [Concomitant]
     Dosage: 20 MILLIGRAM
     Route: 048
     Dates: start: 20110514
  11. HYDRALAZINE [Concomitant]
     Indication: HYPERTENSION
     Dosage: 50 MILLIGRAM
     Route: 048
     Dates: start: 20050101
  12. HUMULIN R [Concomitant]
     Indication: DIABETES MELLITUS
     Dosage: SLIDING SCALE
     Route: 058
     Dates: start: 2009
  13. HUMULIN R [Concomitant]
     Dosage: 5 UNITS
     Route: 058
     Dates: start: 20110509
  14. LEVOTHYROXINE [Concomitant]
     Indication: HYPOTHYROIDISM
     Dosage: .05 MILLIGRAM
     Route: 048
     Dates: start: 20050101
  15. METOPROLOL [Concomitant]
     Indication: HYPERTENSION
     Dosage: 50 MILLIGRAM
     Route: 048
     Dates: start: 20050101, end: 20110510
  16. METOPROLOL [Concomitant]
     Dosage: 100 MILLIGRAM
     Route: 048
     Dates: start: 20110510, end: 20110510
  17. METOPROLOL [Concomitant]
     Dosage: 150 MILLIGRAM
     Route: 048
     Dates: start: 20110511
  18. METOPROLOL [Concomitant]
     Route: 048
     Dates: start: 20110518, end: 20110518
  19. MULTIVITAMINS [Concomitant]
     Indication: MACULAR DEGENERATION
     Dosage: 1 TABLET
     Route: 048
     Dates: start: 201012
  20. NORTRIPTYLINE [Concomitant]
     Indication: INSOMNIA
     Dosage: 50 MILLIGRAM
     Route: 048
     Dates: start: 20050101
  21. DONEPEZIL [Concomitant]
     Indication: DEMENTIA
     Dosage: 10 MILLIGRAM
     Route: 048
     Dates: start: 2005
  22. DONEPEZIL [Concomitant]
     Indication: AMNESIA
     Dosage: 5 MILLIGRAM
     Route: 048
  23. T-GEL [Concomitant]
     Indication: PSORIASIS
     Dosage: 1 APPLICATION
     Route: 061
     Dates: start: 20110405
  24. KETOTIFEN [Concomitant]
     Indication: MULTIPLE ALLERGIES
     Route: 047
     Dates: start: 201012
  25. PLAVIX [Concomitant]
     Indication: ARTERIOSCLEROSIS
     Dosage: 37.5
     Route: 065
     Dates: start: 2005, end: 20110509
  26. LASIX [Concomitant]
     Indication: OEDEMA
     Route: 041
     Dates: start: 20110511
  27. LASIX [Concomitant]
     Dosage: 40 MILLIGRAM
     Route: 041
     Dates: start: 20110512
  28. LASIX [Concomitant]
     Dosage: 10 MILLIGRAM
     Route: 041
     Dates: start: 20110511, end: 20110511
  29. LASIX [Concomitant]
     Dosage: 40 MILLIGRAM
     Route: 048
     Dates: start: 20110514
  30. LISINOPRIL [Concomitant]
     Indication: OEDEMA
     Dosage: 5 MILLIGRAM
     Route: 048
     Dates: start: 20110511, end: 20110519
  31. LISINOPRIL [Concomitant]
     Indication: HYPERTENSION
     Dosage: 5 MILLIGRAM
     Route: 041
     Dates: start: 20110512
  32. ISOSORBIDE MONONITRATE [Concomitant]
     Indication: CHEST PAIN
     Dosage: 30 MILLIGRAM
     Route: 048
     Dates: start: 20110511
  33. OMEPRAZOLE [Concomitant]
     Indication: APHASIA
     Dosage: 40 MILLIGRAM
     Route: 048
     Dates: start: 20110512, end: 20110518
  34. OMEPRAZOLE [Concomitant]
     Indication: DYSPEPSIA
  35. SIMVASTATIN [Concomitant]
     Indication: BLOOD CHOLESTEROL
     Route: 048
  36. SIMVASTATIN [Concomitant]
     Indication: HYPERCHOLESTEROLAEMIA
     Dosage: 40 MILLIGRAM
     Route: 048
     Dates: start: 20110515
  37. SIMVASTATIN [Concomitant]
     Dosage: 20 MILLIGRAM
     Route: 048
     Dates: start: 20110515
  38. NITROGLYCERIN [Concomitant]
     Indication: CHEST PAIN
     Dosage: 1INCH
     Route: 061
     Dates: start: 20110309, end: 20110511
  39. PANTOPRAZOLE [Concomitant]
     Indication: DYSPEPSIA
     Dosage: 40 MILLIGRAM
     Route: 041
     Dates: start: 20110509, end: 20110512
  40. SALINE [Concomitant]
     Indication: CATHETER MANAGEMENT
     Dosage: 9 MILLILITER
     Route: 041
     Dates: start: 20110509, end: 20110514
  41. ACETAMINOPHEN [Concomitant]
     Indication: HEADACHE
     Route: 048
     Dates: start: 20110509, end: 20110510
  42. ALUM/MAG HYDROX/SIMETH [Concomitant]
     Indication: DYSPEPSIA
     Route: 048
     Dates: start: 20110509, end: 20110509
  43. CAYENNE PEPPER [Concomitant]
     Indication: PRODUCT USED FOR UNKNOWN INDICATION
     Dosage: 1 CAPSULE
     Route: 048
     Dates: start: 20110601

REACTIONS (2)
  - Microcytic anaemia [Recovered/Resolved]
  - Acute myocardial infarction [Recovered/Resolved]
